FAERS Safety Report 7894299-7 (Version None)
Quarter: 2011Q4

REPORT INFORMATION
  Report Type: 
  Country: None (occurrence: None)
  Receive Date: 20111104
  Receipt Date: 20111031
  Transmission Date: 20120403
  Serious: Yes (Hospitalization, Other)
  Sender: FDA-Public Use
  Company Number: US-ABBOTT-11P-163-0869590-00

PATIENT
  Age: 43 Year
  Sex: Male

DRUGS (10)
  1. EMTRICITABINE AND TENOFOVIR DISOPROXIL FUMARATE [Suspect]
  2. ATAZANAVIR [Suspect]
     Indication: ANTIRETROVIRAL THERAPY
  3. EMTRICITABINE AND TENOFOVIR DISOPROXIL FUMARATE [Suspect]
     Indication: ANTIRETROVIRAL THERAPY
  4. PENICILLIN [Concomitant]
     Indication: NEUROSYPHILIS
  5. RITONAVIR [Suspect]
     Indication: ANTIRETROVIRAL THERAPY
  6. RITONAVIR [Suspect]
  7. PENICILLIN [Concomitant]
     Indication: TOXOPLASMOSIS
  8. PYRIMETHAMINE W/SULFADOXINE [Concomitant]
     Indication: NEUROSYPHILIS
  9. PYRIMETHAMINE W/SULFADOXINE [Concomitant]
     Indication: TOXOPLASMOSIS
  10. CLINDAMYCIN [Concomitant]

REACTIONS (2)
  - HEPATITIS ACUTE [None]
  - VANISHING BILE DUCT SYNDROME [None]
